FAERS Safety Report 8182624-1 (Version None)
Quarter: 2012Q1

REPORT INFORMATION
  Report Type: 
  Country: None (occurrence: None)
  Receive Date: 20120301
  Receipt Date: 20120301
  Transmission Date: 20120608
  Serious: Yes (Disabling)
  Sender: FDA-Public Use
  Company Number: None

PATIENT
  Age: 71 Year
  Sex: Female
  Weight: 47.6277 kg

DRUGS (1)
  1. RESTASIS [Suspect]
     Indication: DRY EYE
     Dosage: 1 DROP 5 TIMES A DAY EYES  APR OR MAY 2009 (?)

REACTIONS (3)
  - FOREIGN BODY SENSATION IN EYES [None]
  - LACRIMATION INCREASED [None]
  - EYE PAIN [None]
